FAERS Safety Report 8968241 (Version 1)
Quarter: 2012Q4

REPORT INFORMATION
  Report Type: Spontaneous
  Country: KR (occurrence: None)
  Receive Date: 20121210
  Receipt Date: 20121210
  Transmission Date: 20130627
  Serious: Yes (Other)
  Sender: FDA-Public Use
  Company Number: DSA_57623_2012

PATIENT

DRUGS (6)
  1. FLOUROURACIL [Suspect]
     Indication: METASTATIC GASTRIC CANCER
     Route: 042
  2. CISPLATIN [Suspect]
     Indication: METASTATIC GASTRIC CANCER
     Dosage: every three weeks Intravenous (not otherwise specified)
     Route: 042
  3. DOCETAXEL [Concomitant]
     Route: 042
  4. DEXAMETHASONE (UNKNOWN [Concomitant]
  5. RANITIDINE (UNKNOWN) [Concomitant]
  6. PHENIRAMINE MALEATE (UNKNOWN) [Concomitant]

REACTIONS (1)
  - Diarrhoea [None]
